FAERS Safety Report 5598555-7 (Version None)
Quarter: 2008Q1

REPORT INFORMATION
  Report Type: 
  Country: None (occurrence: None)
  Receive Date: 20080122
  Receipt Date: 20080116
  Transmission Date: 20080703
  Serious: Yes (Hospitalization)
  Sender: FDA-Public Use
  Company Number: FR-ELI_LILLY_AND_COMPANY-FR200801003413

PATIENT
  Age: 77 Year
  Sex: Female

DRUGS (6)
  1. FORTEO [Suspect]
     Indication: OSTEOPOROSIS
     Dosage: 20 UG, DAILY (1/D)
     Route: 058
     Dates: start: 20070628
  2. AMLOR [Concomitant]
     Dosage: 1 D/F, EACH MORNING
  3. PROPRANOLOL [Concomitant]
     Dosage: 0.5 D/F, EACH MORNING
  4. CACIT D3 [Concomitant]
     Dosage: 1 D/F, EACH MORNING
  5. DAFALGAN [Concomitant]
     Indication: PAIN
     Dosage: UNK, AS NEEDED
  6. DIANTALVIC [Concomitant]
     Indication: PAIN
     Dosage: UNK, AS NEEDED

REACTIONS (1)
  - SCIATICA [None]
